FAERS Safety Report 7898017-8 (Version None)
Quarter: 2011Q4

REPORT INFORMATION
  Report Type: 
  Country: None (occurrence: None)
  Receive Date: 20111107
  Receipt Date: 20111107
  Transmission Date: 20120403
  Serious: Yes (Hospitalization, Other)
  Sender: FDA-Public Use
  Company Number: None

PATIENT
  Age: 78 Year
  Sex: Male
  Weight: 71.667 kg

DRUGS (1)
  1. BENICAR [Suspect]
     Indication: HYPERTENSION
     Dosage: VARIOUS FROM 5 MG TO 20MG
     Dates: start: 20000101, end: 20110101

REACTIONS (2)
  - SYNCOPE [None]
  - BLOOD PRESSURE DECREASED [None]
